FAERS Safety Report 7476314-8 (Version None)
Quarter: 2011Q2

REPORT INFORMATION
  Report Type: 
  Country: None (occurrence: None)
  Receive Date: 20110512
  Receipt Date: 20110119
  Transmission Date: 20111010
  Serious: Yes (Hospitalization, Other)
  Sender: FDA-Public Use
  Company Number: US-BAYER-201030247NA

PATIENT
  Age: 21 Year
  Sex: Female
  Weight: 86 kg

DRUGS (26)
  1. YASMIN [Suspect]
     Indication: PREMENSTRUAL SYNDROME
  2. YASMIN [Suspect]
     Indication: CONTRACEPTION
     Route: 048
     Dates: start: 20030101, end: 20080615
  3. TOPAMAX [Concomitant]
     Indication: MIGRAINE
  4. ZYRTEC [Concomitant]
     Indication: URTICARIA
  5. CARISOPRODOL [Concomitant]
     Indication: MIGRAINE
  6. NSAID'S [Concomitant]
     Indication: BACK PAIN
  7. BENTYL [Concomitant]
  8. YAZ [Suspect]
     Indication: CONTRACEPTION
     Route: 048
     Dates: start: 20040101, end: 20080615
  9. SOMA [Concomitant]
     Indication: BACK PAIN
     Dosage: 350 MG 1/2 TAB. QHS
  10. PRILOSEC [Concomitant]
  11. RELPAX [Concomitant]
  12. DROSPIRENONE AND ETHINYL ESTRADIOL [Suspect]
     Indication: ACNE
  13. DROSPIRENONE AND ETHINYL ESTRADIOL [Suspect]
     Indication: PREMENSTRUAL SYNDROME
  14. NORTRIPTYLINE HCL [Concomitant]
  15. HYDROCODONE BITARTRATE [Concomitant]
     Indication: PAIN
  16. NORTRIPTYLINE HCL [Concomitant]
     Dosage: 30 MG, QD
  17. YAZ [Suspect]
     Indication: PREMENSTRUAL SYNDROME
  18. YASMIN [Suspect]
     Indication: ACNE
  19. YAZ [Suspect]
     Indication: ACNE
  20. LORATADINE [Concomitant]
  21. DROSPIRENONE AND ETHINYL ESTRADIOL [Suspect]
     Indication: CONTRACEPTION
     Dates: start: 20080101
  22. SOMA [Concomitant]
     Indication: INSOMNIA
  23. ZYRTEC [Concomitant]
     Indication: MULTIPLE ALLERGIES
  24. NORTRIPTYLINE HCL [Concomitant]
     Indication: MIGRAINE
  25. EXCEDRIN (MIGRAINE) [Concomitant]
  26. LORA TAB [Concomitant]

REACTIONS (3)
  - CHOLECYSTITIS [None]
  - BILE DUCT OBSTRUCTION [None]
  - CHOLELITHIASIS [None]
